FAERS Safety Report 8147717-3 (Version None)
Quarter: 2012Q1

REPORT INFORMATION
  Report Type: 
  Country: None (occurrence: None)
  Receive Date: 20120218
  Receipt Date: 20110506
  Transmission Date: 20120608
  Serious: No
  Sender: FDA-Public Use
  Company Number: US-ALLERGAN-1103349US

PATIENT
  Age: 70 Year
  Sex: Female
  Weight: 68.027 kg

DRUGS (3)
  1. BOTULINUM TOXIN TYPE A [Suspect]
     Indication: BLEPHAROSPASM
     Dosage: 40 UNITS, SINGLE
     Dates: start: 20100420, end: 20100420
  2. BOTULINUM TOXIN TYPE A [Suspect]
     Dosage: UNK UNITS, SINGLE
     Dates: start: 20100807, end: 20100807
  3. BOTULINUM TOXIN TYPE A [Suspect]
     Dosage: UNK UNITS, SINGLE
     Dates: start: 20110105, end: 20110105

REACTIONS (5)
  - LAGOPHTHALMOS [None]
  - EYELID PTOSIS [None]
  - THERAPEUTIC RESPONSE DECREASED [None]
  - SKIN TIGHTNESS [None]
  - LACRIMATION INCREASED [None]
